FAERS Safety Report 24625249 (Version 1)
Quarter: 2024Q4

REPORT INFORMATION
  Report Type: Spontaneous
  Country: US (occurrence: US)
  Receive Date: 20241115
  Receipt Date: 20241115
  Transmission Date: 20250115
  Serious: Yes (Death)
  Sender: TAIHO ONCOLOGY INC
  Company Number: US-TAIHOP-2024-010827

PATIENT
  Sex: Male

DRUGS (1)
  1. INQOVI [Suspect]
     Active Substance: CEDAZURIDINE\DECITABINE
     Indication: Myelodysplastic syndrome
     Dosage: 35MG DECITABINE AND 100MG CEDAZURIDINE ON DAYS 1-5 OF EACH 28 DAY CYCLE; CYCLE UNKNOWN
     Route: 048

REACTIONS (1)
  - Death [Fatal]
